FAERS Safety Report 18490592 (Version 2)
Quarter: 2020Q4

REPORT INFORMATION
  Report Type: Spontaneous
  Country: NL (occurrence: IT)
  Receive Date: 20201111
  Receipt Date: 20201117
  Transmission Date: 20210114
  Serious: Yes (Hospitalization)
  Sender: FDA-Public Use
  Company Number: IT-FRESENIUS KABI-FK202011918

PATIENT
  Age: 43 Year
  Sex: Male
  Weight: 85 kg

DRUGS (1)
  1. ROCURONIUM [Suspect]
     Active Substance: ROCURONIUM BROMIDE
     Indication: SURGERY
     Route: 042
     Dates: start: 20200923, end: 20200923

REACTIONS (6)
  - Asthenia [Unknown]
  - Respiratory depression [Unknown]
  - Medication error [Unknown]
  - Recurrence of neuromuscular blockade [Unknown]
  - Loss of consciousness [Unknown]
  - Coma [Unknown]

NARRATIVE: CASE EVENT DATE: 20200923
